FAERS Safety Report 13428034 (Version 1)
Quarter: 2017Q2

REPORT INFORMATION
  Report Type: Spontaneous
  Country: GB (occurrence: GB)
  Receive Date: 20170411
  Receipt Date: 20170411
  Transmission Date: 20170830
  Serious: Yes (Disabling)
  Sender: FDA-Public Use
  Company Number: GB-TEVA-755376ACC

PATIENT
  Age: 82 Year
  Sex: Female
  Weight: 97 kg

DRUGS (11)
  1. DERMOL [Concomitant]
     Active Substance: BENZALKONIUM CHLORIDE\CHLORHEXIDINE HYDROCHLORIDE\ISOPROPYL MYRISTATE\PARAFFIN
     Dosage: USE AS DIRECTED.
     Dates: start: 20161128
  2. VENTOLIN [Concomitant]
     Active Substance: ALBUTEROL SULFATE
     Dosage: ONE TO TWO DOSES AS NEEDED.
     Route: 055
     Dates: start: 20160404
  3. PREDNISOLONE. [Concomitant]
     Active Substance: PREDNISOLONE
     Dosage: TAKE EIGHT AT ONCE, ONCE A DAY IN THE MORNING
     Dates: start: 20170301, end: 20170306
  4. TRAMADOL. [Concomitant]
     Active Substance: TRAMADOL
     Dosage: TAKE 1 OR 2 AS DIRECTED ( MAXIMUM 8 A DAY).
     Dates: start: 20161128
  5. FUROSEMIDE. [Concomitant]
     Active Substance: FUROSEMIDE
     Dosage: EACH MORNING.
     Dates: start: 20160509
  6. LOSEC [Concomitant]
     Active Substance: OMEPRAZOLE
     Dates: start: 20160818
  7. IRBESARTAN. [Concomitant]
     Active Substance: IRBESARTAN
     Dates: start: 20161128
  8. SERETIDE [Concomitant]
     Active Substance: FLUTICASONE PROPIONATE\SALMETEROL XINAFOATE
     Route: 055
     Dates: start: 20160215
  9. DOXYCYCLINE. [Suspect]
     Active Substance: DOXYCYCLINE
     Dates: start: 20170320
  10. ZEROBASE [Concomitant]
     Dosage: AT LEAST TWICE DAILY.
     Dates: start: 20160620
  11. CLARITHROMYCIN. [Concomitant]
     Active Substance: CLARITHROMYCIN
     Dates: start: 20170320

REACTIONS (2)
  - Nausea [Recovered/Resolved]
  - Malaise [Unknown]

NARRATIVE: CASE EVENT DATE: 20170320
